FAERS Safety Report 5276573-6 (Version None)
Quarter: 2007Q1

REPORT INFORMATION
  Report Type: 
  Country: None (occurrence: None)
  Receive Date: 20070327
  Receipt Date: 20070315
  Transmission Date: 20070707
  Serious: Yes (Death, Hospitalization)
  Sender: FDA-Public Use
  Company Number: ES-JNJFOC-20070304140

PATIENT
  Age: 44 Year
  Sex: Male

DRUGS (4)
  1. REMICADE [Suspect]
     Indication: CROHN'S DISEASE
     Dosage: 15 DOSES
     Route: 042
  2. AZATHIOPRINE [Concomitant]
  3. 5-ASA [Concomitant]
  4. CORTICOSTEROIDS [Concomitant]

REACTIONS (4)
  - ANGINA PECTORIS [None]
  - CARDIOGENIC SHOCK [None]
  - INFARCTION [None]
  - PERIANAL ABSCESS [None]
